FAERS Safety Report 9184192 (Version 1)
Quarter: 2013Q1

REPORT INFORMATION
  Report Type: Spontaneous
  Country: US (occurrence: US)
  Receive Date: 20130322
  Receipt Date: 20130322
  Transmission Date: 20140127
  Serious: No
  Sender: FDA-Public Use
  Company Number: US-BRISTOL-MYERS SQUIBB COMPANY-16459042

PATIENT
  Age: 67 Year
  Sex: Male
  Weight: 72.11 kg

DRUGS (1)
  1. ERBITUX [Suspect]
     Indication: THROAT CANCER
     Dates: start: 20120306

REACTIONS (3)
  - Weight decreased [Unknown]
  - Rash pruritic [Not Recovered/Not Resolved]
  - Skin burning sensation [Recovered/Resolved]
